FAERS Safety Report 4728842-3 (Version None)
Quarter: 2005Q3

REPORT INFORMATION
  Report Type: 
  Country: None (occurrence: None)
  Receive Date: 20050729
  Receipt Date: 20050719
  Transmission Date: 20060218
  Serious: Yes (Life-Threatening)
  Sender: FDA-Public Use
  Company Number: RO-ROCHE-411278

PATIENT
  Age: 35 Year
  Sex: Female
  Weight: 55 kg

DRUGS (2)
  1. PEGASYS [Suspect]
     Dosage: FORM REPORTED AS PFS.
     Route: 058
     Dates: start: 20040815, end: 20050629
  2. PEGASYS [Suspect]
     Route: 058

REACTIONS (6)
  - ACUTE PULMONARY OEDEMA [None]
  - ASTHENIA [None]
  - CHEST DISCOMFORT [None]
  - PLASMAPHERESIS [None]
  - RAYNAUD'S PHENOMENON [None]
  - VASCULITIS [None]
